FAERS Safety Report 11697296 (Version 1)
Quarter: 2015Q4

REPORT INFORMATION
  Report Type: Spontaneous
  Country: US (occurrence: US)
  Receive Date: 20151104
  Receipt Date: 20151104
  Transmission Date: 20160304
  Serious: Yes (Hospitalization)
  Sender: FDA-Public Use
  Company Number: US-BAYER-2015-452438

PATIENT
  Age: 65 Year
  Sex: Male

DRUGS (2)
  1. BAYER ASPIRIN QUICK RELEASE CRYSTALS [Suspect]
     Active Substance: ASPIRIN
     Indication: MYOCARDIAL INFARCTION
     Dosage: 1 DF, ONCE
     Route: 048
  2. BAYER LOW DOSE [Suspect]
     Active Substance: ASPIRIN
     Indication: ANTICOAGULANT THERAPY
     Dosage: UNK
     Route: 048

REACTIONS (3)
  - Wrong technique in product usage process [None]
  - Myocardial infarction [None]
  - Product use issue [None]
